FAERS Safety Report 8081256-3 (Version None)
Quarter: 2012Q1

REPORT INFORMATION
  Report Type: 
  Country: None (occurrence: None)
  Receive Date: 20120130
  Receipt Date: 20120126
  Transmission Date: 20120608
  Serious: Yes (Other)
  Sender: FDA-Public Use
  Company Number: SG-BAYER-2012-008473

PATIENT
  Age: 75 Year
  Sex: Male

DRUGS (2)
  1. TETRACYCLINE [Suspect]
  2. ACETYLSALICYLIC ACID SRT [Suspect]

REACTIONS (1)
  - ANGIOEDEMA [None]
